FAERS Safety Report 12423614 (Version 1)
Quarter: 2016Q2

REPORT INFORMATION
  Report Type: Spontaneous
  Country: US (occurrence: US)
  Receive Date: 20160601
  Receipt Date: 20160601
  Transmission Date: 20160815
  Serious: No
  Sender: FDA-Public Use
  Company Number: US-NOVEN PHARMACEUTICALS, INC.-US2015000629

PATIENT
  Age: 7 Year
  Sex: Female

DRUGS (5)
  1. ATIVAN [Concomitant]
     Active Substance: LORAZEPAM
     Dosage: 0.5 MG, UNK
  2. TENEX [Concomitant]
     Active Substance: GUANFACINE HYDROCHLORIDE
     Dosage: 2 MG, UNK
  3. DAYTRANA [Suspect]
     Active Substance: METHYLPHENIDATE
     Indication: ATTENTION DEFICIT/HYPERACTIVITY DISORDER
     Dosage: 20 MG, UNKNOWN
     Route: 062
     Dates: start: 2014
  4. SEROQUEL [Concomitant]
     Active Substance: QUETIAPINE FUMARATE
     Dosage: 25 MG, BID
  5. PROZAC [Concomitant]
     Active Substance: FLUOXETINE HYDROCHLORIDE
     Dosage: 10 MG, UNK

REACTIONS (3)
  - Product adhesion issue [Unknown]
  - Drug ineffective [Unknown]
  - Wrong technique in product usage process [Unknown]

NARRATIVE: CASE EVENT DATE: 20150718
